FAERS Safety Report 7901692-2 (Version None)
Quarter: 2011Q4

REPORT INFORMATION
  Report Type: 
  Country: None (occurrence: None)
  Receive Date: 20111108
  Receipt Date: 20111103
  Transmission Date: 20120403
  Serious: Yes (Death, Other)
  Sender: FDA-Public Use
  Company Number: NZ-B.I. PHARMACEUTICALS,INC./RIDGEFIELD-2011-AU-00610AU

PATIENT
  Age: 82 Year
  Sex: Female

DRUGS (9)
  1. CELIPROLOL [Concomitant]
     Dates: start: 20110630
  2. PRADAXA [Suspect]
     Indication: ATRIAL FIBRILLATION
     Dosage: 220 MG
     Dates: start: 20110716, end: 20110719
  3. WARFARIN SODIUM [Concomitant]
     Dates: end: 20110701
  4. ZOPICLONE [Concomitant]
     Dosage: 1 NOCTE PRN
     Dates: start: 20110630
  5. FUROSEMIDE [Concomitant]
  6. ACETAMINOPHEN [Concomitant]
  7. LEVOTHYROXINE SODIUM [Concomitant]
     Dates: start: 20110630
  8. ALLOPURINOL [Concomitant]
     Dates: start: 20110630
  9. OMEPRAZOLE [Concomitant]
     Dates: start: 20110630

REACTIONS (4)
  - CEREBRAL ARTERY EMBOLISM [None]
  - DISORIENTATION [None]
  - CONFUSIONAL STATE [None]
  - URINARY TRACT INFECTION [None]
